FAERS Safety Report 6378023-5 (Version None)
Quarter: 2009Q3

REPORT INFORMATION
  Report Type: 
  Country: None (occurrence: None)
  Receive Date: 20090925
  Receipt Date: 20090914
  Transmission Date: 20100115
  Serious: Yes (Other)
  Sender: FDA-Public Use
  Company Number: CA-GENENTECH-290704

PATIENT
  Sex: Female

DRUGS (2)
  1. OMALIZUMAB [Suspect]
     Indication: ASTHMA
     Dosage: 150 MG, 1/MONTH
     Route: 058
     Dates: start: 20071102
  2. OMALIZUMAB [Suspect]
     Dosage: 150 MG, UNKNOWN
     Route: 058
     Dates: start: 20090914

REACTIONS (4)
  - COUGH [None]
  - HEADACHE [None]
  - HERPES ZOSTER [None]
  - RHINORRHOEA [None]
